FAERS Safety Report 21109175 (Version 1)
Quarter: 2022Q3

REPORT INFORMATION
  Report Type: Spontaneous
  Country: US (occurrence: US)
  Receive Date: 20220721
  Receipt Date: 20220721
  Transmission Date: 20221027
  Serious: No
  Sender: FDA-Public Use
  Company Number: US-ORGANON-O2207USA001196

PATIENT
  Sex: Male

DRUGS (4)
  1. ELOCON [Suspect]
     Active Substance: MOMETASONE FUROATE
     Indication: Dermatitis atopic
     Dosage: UNK
  2. PARAFFIN, WHITE SOFT [Suspect]
     Active Substance: PARAFFIN
     Indication: Dermatitis atopic
     Dosage: UNK
  3. PARAFFIN, WHITE SOFT [Suspect]
     Active Substance: PARAFFIN
     Indication: Asthma
  4. PARAFFIN, WHITE SOFT [Suspect]
     Active Substance: PARAFFIN
     Indication: Rhinitis allergic

REACTIONS (1)
  - Drug ineffective [Unknown]
